FAERS Safety Report 6882403-9 (Version None)
Quarter: 2010Q3

REPORT INFORMATION
  Report Type: 
  Country: None (occurrence: None)
  Receive Date: 20100729
  Receipt Date: 20100721
  Transmission Date: 20110219
  Serious: Yes (Hospitalization, Other)
  Sender: FDA-Public Use
  Company Number: US-BRISTOL-MYERS SQUIBB COMPANY-15203227

PATIENT
  Age: 60 Year
  Sex: Male

DRUGS (4)
  1. WARFARIN SODIUM [Suspect]
     Indication: CARDIAC FAILURE CONGESTIVE
     Dosage: DISCONTINUED AND RESTARTED AGAIN
     Route: 048
     Dates: start: 20090101
  2. ELOXATIN [Suspect]
     Indication: COLORECTAL CANCER METASTATIC
     Dosage: DEC08-DEC08 JAN09-JAN09
     Route: 051
     Dates: start: 20081201, end: 20090101
  3. FLUOROURACIL [Suspect]
     Indication: COLORECTAL CANCER METASTATIC
     Dosage: DEC08-DEC08 JAN09-JAN09
     Route: 042
     Dates: start: 20081201, end: 20090101
  4. LEUCOVORIN CALCIUM [Suspect]
     Indication: COLORECTAL CANCER METASTATIC
     Dosage: DEC08-DEC08 JAN09-JAN09
     Route: 042
     Dates: start: 20081201, end: 20090101

REACTIONS (8)
  - AUTOIMMUNE THROMBOCYTOPENIA [None]
  - CONTUSION [None]
  - EPISTAXIS [None]
  - GINGIVAL BLEEDING [None]
  - HYPERSENSITIVITY [None]
  - PETECHIAE [None]
  - POST PROCEDURAL HAEMORRHAGE [None]
  - TONGUE HAEMATOMA [None]
